FAERS Safety Report 4640270-8 (Version None)
Quarter: 2005Q2

REPORT INFORMATION
  Report Type: 
  Country: None (occurrence: None)
  Receive Date: 20050420
  Receipt Date: 20050412
  Transmission Date: 20051028
  Serious: Yes (Other)
  Sender: FDA-Public Use
  Company Number: GB-GLAXOSMITHKLINE-B0377668A

PATIENT
  Age: 34 Year
  Sex: Male
  Weight: 85 kg

DRUGS (3)
  1. ZYBAN [Suspect]
     Indication: SMOKING CESSATION THERAPY
     Dosage: 150MG UNKNOWN
     Route: 048
     Dates: start: 20050131, end: 20050310
  2. AMITRIPTYLINE HCL TAB [Concomitant]
     Indication: MUSCLE RELAXANT THERAPY
     Dosage: 10MG PER DAY
     Route: 048
     Dates: start: 20050302
  3. IBUPROFEN [Concomitant]
     Indication: SCIATICA
     Dosage: 200MG PER DAY
     Route: 048
     Dates: start: 20050302

REACTIONS (2)
  - ARTHRALGIA [None]
  - JOINT CREPITATION [None]
